FAERS Safety Report 4469043-6 (Version None)
Quarter: 2004Q4

REPORT INFORMATION
  Report Type: 
  Country: None (occurrence: None)
  Receive Date: 20041008
  Receipt Date: 20041001
  Transmission Date: 20050328
  Serious: Yes (Other)
  Sender: FDA-Public Use
  Company Number: US-BRISTOL-MYERS SQUIBB COMPANY-12719365

PATIENT
  Age: 70 Year
  Sex: Male
  Weight: 77 kg

DRUGS (3)
  1. PRAVACHOL [Suspect]
     Indication: BLOOD CHOLESTEROL INCREASED
     Dosage: INITIAL DOSING 10 MG, INCREASED 20 MG, DATE UNSPECIFIED, SEP-2004 UP TO 30 MG DAILY
     Route: 048
  2. ASPIRIN [Concomitant]
     Route: 048
  3. MULTI-VITAMIN [Concomitant]
     Route: 048

REACTIONS (2)
  - CARDIOMYOPATHY [None]
  - PERICARDITIS [None]
